FAERS Safety Report 8770342 (Version 1)
Quarter: 2012Q4

REPORT INFORMATION
  Report Type: 
  Country: CA (occurrence: CA)
  Receive Date: 20120906
  Receipt Date: 20120906
  Transmission Date: 20130627
  Serious: Yes (Other)
  Sender: FDA-Public Use
  Company Number: CA-BAYER-2012-089875

PATIENT
  Sex: Female

DRUGS (1)
  1. MIRENA [Suspect]
     Dosage: 20 mcg/24hr, CONT
     Route: 015
     Dates: start: 20110704

REACTIONS (5)
  - Abdominal pain [None]
  - Menstrual disorder [None]
  - Complication of device removal [None]
  - Device dislocation [None]
  - Hysterectomy [None]
